FAERS Safety Report 6894121-1 (Version None)
Quarter: 2010Q3

REPORT INFORMATION
  Report Type: 
  Country: None (occurrence: None)
  Receive Date: 20100802
  Receipt Date: 20100726
  Transmission Date: 20110219
  Serious: Yes (Other)
  Sender: FDA-Public Use
  Company Number: US-JNJFOC-20100708327

PATIENT
  Sex: Male
  Weight: 108.86 kg

DRUGS (6)
  1. SANDOZ FENTANYL TRANSDERMAL SYSTEM [Suspect]
     Indication: RHEUMATOID ARTHRITIS
     Dosage: NDC#: 0781-7244-55
     Route: 062
  2. SANDOZ FENTANYL TRANSDERMAL SYSTEM [Suspect]
     Indication: FIBROMYALGIA
     Dosage: NDC#: 0781-7244-55
     Route: 062
  3. FENTANYL-100 [Suspect]
     Indication: RHEUMATOID ARTHRITIS
     Route: 062
  4. FENTANYL-100 [Suspect]
     Indication: FIBROMYALGIA
     Route: 062
  5. CELEBREX [Concomitant]
     Indication: ARTHRITIS
     Route: 048
  6. MORPHINE [Concomitant]
     Indication: BREAKTHROUGH PAIN
     Route: 065

REACTIONS (3)
  - DRUG INEFFECTIVE [None]
  - NERVE INJURY [None]
  - PAIN [None]
